FAERS Safety Report 21902506 (Version 1)
Quarter: 2023Q1

REPORT INFORMATION
  Report Type: Report from Study
  Country: CZ (occurrence: CZ)
  Receive Date: 20230124
  Receipt Date: 20230124
  Transmission Date: 20230418
  Serious: Yes (Other)
  Sender: FDA-Public Use
  Company Number: CZ-TEVA-2023-CZ-2846958

PATIENT
  Age: 31 Year
  Sex: Female
  Weight: 72 kg

DRUGS (10)
  1. FREMANEZUMAB [Suspect]
     Active Substance: FREMANEZUMAB
     Indication: Migraine
     Dosage: AUTOINJECTOR
     Route: 065
     Dates: start: 20210224
  2. SUMATRIPTAN [Concomitant]
     Active Substance: SUMATRIPTAN
     Indication: Headache
     Dosage: 50MG PRN, THERAPY START DATE: -DEC-2012, THERAPY ONGOING
     Route: 048
  3. IBUPROFEN [Concomitant]
     Active Substance: IBUPROFEN
     Indication: Headache
     Dosage: 400MG PRN, THERAPY START DATE: DEC-2019, THERAPY ONGOING
     Route: 048
  4. ACETAMINOPHEN\CAFFEINE\GUAIFENESIN [Concomitant]
     Active Substance: ACETAMINOPHEN\CAFFEINE\GUAIFENESIN
     Indication: Headache
     Dosage: 1 TABLET PRN, THERAPY START DATE: --1996, THERAPY ONGOING
     Route: 048
  5. Pfizer Vaccinations Comirnaty [Concomitant]
     Indication: COVID-19 immunisation
     Dosage: 1 INJECTION QD
     Route: 030
     Dates: start: 20211022, end: 20211022
  6. Pfizer Vaccinations Comirnaty [Concomitant]
     Dosage: 1 INJECTION QD
     Route: 030
     Dates: start: 20211112, end: 20211112
  7. AGOLUTIN [Concomitant]
     Indication: Haemorrhagic ovarian cyst
     Dosage: 60 MILLIGRAM DAILY;
     Route: 030
     Dates: start: 20220324, end: 20220324
  8. AZITHROMYCIN [Concomitant]
     Active Substance: AZITHROMYCIN
     Indication: Lyme disease
     Dosage: 1000 MILLIGRAM DAILY;
     Route: 048
     Dates: start: 20220429, end: 20220429
  9. AZITHROMYCIN [Concomitant]
     Active Substance: AZITHROMYCIN
     Dosage: 500 MILLIGRAM DAILY;
     Route: 048
     Dates: start: 20220430, end: 20220507
  10. Doxibene [Concomitant]
     Indication: Lyme disease
     Dosage: 200 MILLIGRAM DAILY;
     Route: 048
     Dates: start: 20220508, end: 20220528

REACTIONS (2)
  - Neuroborreliosis [Recovered/Resolved]
  - Sinusitis [Recovered/Resolved]

NARRATIVE: CASE EVENT DATE: 20221014
